FAERS Safety Report 25011494 (Version 1)
Quarter: 2025Q1

REPORT INFORMATION
  Report Type: Spontaneous
  Country: AU (occurrence: AU)
  Receive Date: 20250226
  Receipt Date: 20250226
  Transmission Date: 20250409
  Serious: Yes (Hospitalization, Other)
  Sender: BRISTOL-MYERS SQUIBB COMPANY
  Company Number: AU-BRISTOL-MYERS SQUIBB COMPANY-2025-026311

PATIENT
  Age: 45 Year
  Sex: Female

DRUGS (9)
  1. OPDIVO [Suspect]
     Active Substance: NIVOLUMAB
     Indication: Non-small cell lung cancer
     Dates: start: 20240424, end: 20240618
  2. OPDIVO [Suspect]
     Active Substance: NIVOLUMAB
     Dates: start: 20240523
  3. OPDIVO [Suspect]
     Active Substance: NIVOLUMAB
     Dates: end: 20240618
  4. CARBOPLATIN [Suspect]
     Active Substance: CARBOPLATIN
     Indication: Non-small cell lung cancer
     Dates: start: 20240424
  5. CARBOPLATIN [Suspect]
     Active Substance: CARBOPLATIN
     Dates: start: 20240523
  6. PACLITAXEL [Suspect]
     Active Substance: PACLITAXEL
     Indication: Non-small cell lung cancer
     Dates: start: 20240424
  7. PACLITAXEL [Suspect]
     Active Substance: PACLITAXEL
     Dates: start: 20240523
  8. CISPLATIN [Suspect]
     Active Substance: CISPLATIN
     Indication: Non-small cell lung cancer
     Dates: start: 20240618, end: 20240618
  9. PEMETREXED [Suspect]
     Active Substance: PEMETREXED
     Indication: Non-small cell lung cancer
     Dates: start: 20240618, end: 20240618

REACTIONS (7)
  - Rash [Unknown]
  - Respiratory tract infection [Unknown]
  - Hepatic function abnormal [Recovered/Resolved]
  - Anaphylactic reaction [Recovered/Resolved]
  - Pyrexia [Unknown]
  - Hepatic lesion [Unknown]
  - Pneumonia [Recovered/Resolved]

NARRATIVE: CASE EVENT DATE: 20240430
